FAERS Safety Report 6905279-X (Version None)
Quarter: 2010Q3

REPORT INFORMATION
  Report Type: 
  Country: None (occurrence: None)
  Receive Date: 20100802
  Receipt Date: 20100720
  Transmission Date: 20110219
  Serious: Yes (Hospitalization, Disabling)
  Sender: FDA-Public Use
  Company Number: 7011612

PATIENT
  Age: 32 Year
  Sex: Female
  Weight: 66 kg

DRUGS (6)
  1. REBIF [Suspect]
     Indication: MULTIPLE SCLEROSIS
     Dosage: 44 MCG, 3 IN 1 WK, SUBCUTANEOUS, 22 MCG, 3 IN 1 WK, SUBCUTANEOUWS
     Route: 058
     Dates: start: 20090814, end: 20100101
  2. REBIF [Suspect]
     Indication: MULTIPLE SCLEROSIS
     Dosage: 44 MCG, 3 IN 1 WK, SUBCUTANEOUS, 22 MCG, 3 IN 1 WK, SUBCUTANEOUWS
     Route: 058
     Dates: start: 20100129, end: 20100705
  3. BIRTH CONTROL PILLS [Concomitant]
  4. MULTI-VITAMINS [Concomitant]
  5. ALEVE [Concomitant]
  6. LOW BETA BLOCKER (ALL OTHER THERAPEUTIC  PRODUCTS) [Concomitant]

REACTIONS (7)
  - BEDRIDDEN [None]
  - CHROMATURIA [None]
  - FAECES DISCOLOURED [None]
  - HEPATIC FAILURE [None]
  - HYPOTENSION [None]
  - MENORRHAGIA [None]
  - SYNCOPE [None]
